FAERS Safety Report 5737508-2 (Version None)
Quarter: 2008Q2

REPORT INFORMATION
  Report Type: 
  Country: None (occurrence: None)
  Receive Date: 20080512
  Receipt Date: 20080512
  Transmission Date: 20081010
  Serious: Yes (Death, Other)
  Sender: FDA-Public Use
  Company Number: None

PATIENT
  Sex: Male
  Weight: 95.9 kg

DRUGS (4)
  1. REMICADE [Suspect]
     Indication: PSORIASIS
     Dosage: 500MG Q6WEEKS IV
     Route: 042
     Dates: start: 20080222
  2. REMICADE [Suspect]
     Indication: PSORIASIS
     Dosage: 500MG Q6WEEKS IV
     Route: 042
     Dates: start: 20080404
  3. REMICADE [Suspect]
     Indication: PSORIASIS
  4. REMICADE [Suspect]

REACTIONS (5)
  - BACK PAIN [None]
  - BLOOD PRESSURE INCREASED [None]
  - ERYTHEMA [None]
  - HEADACHE [None]
  - MYALGIA [None]
